FAERS Safety Report 9100867 (Version 1)
Quarter: 2013Q1

REPORT INFORMATION
  Report Type: Report from Study
  Country: CY (occurrence: CY)
  Receive Date: 20130215
  Receipt Date: 20130215
  Transmission Date: 20140127
  Serious: Yes (Other)
  Sender: FDA-Public Use
  Company Number: PHHY2013CY014603

PATIENT
  Age: 57 Year
  Sex: Female

DRUGS (2)
  1. ZOLEDRONATE [Suspect]
     Indication: BONE DISORDER
     Dosage: 4 MG, EVERY FOUR WEEKS
     Route: 042
     Dates: start: 20101027, end: 20130107
  2. FEMARA [Concomitant]
     Indication: BREAST CANCER
     Dosage: 1 DF, DAILY
     Dates: start: 20101027

REACTIONS (3)
  - Osteonecrosis of jaw [Not Recovered/Not Resolved]
  - Pain in jaw [Not Recovered/Not Resolved]
  - Bone lesion [Not Recovered/Not Resolved]
